FAERS Safety Report 6954003-3 (Version None)
Quarter: 2010Q3

REPORT INFORMATION
  Report Type: 
  Country: None (occurrence: None)
  Receive Date: 20100829
  Receipt Date: 20100702
  Transmission Date: 20110219
  Serious: No
  Sender: FDA-Public Use
  Company Number: US-ABBOTT-10P-163-0655070-00

PATIENT
  Sex: Male
  Weight: 74.91 kg

DRUGS (4)
  1. NIASPAN [Suspect]
     Indication: BLOOD TRIGLYCERIDES INCREASED
     Dosage: 500 MG DAILY AT BEDTIME
  2. NIASPAN [Suspect]
     Dosage: 1000 MG DAILY AT BEDTIME
  3. ASPIRIN [Concomitant]
     Indication: PRODUCT USED FOR UNKNOWN INDICATION
  4. UNKNOWN MEDICATION [Concomitant]
     Indication: GOUT

REACTIONS (2)
  - PRURITUS [None]
  - SLEEP DISORDER [None]
